FAERS Safety Report 19682572 (Version 2)
Quarter: 2021Q4

REPORT INFORMATION
  Report Type: Report from Study
  Country: CL (occurrence: CL)
  Receive Date: 20210811
  Receipt Date: 20211013
  Transmission Date: 20220304
  Serious: Yes (Other)
  Sender: FDA-Public Use
  Company Number: CL-JNJFOC-20210812724

PATIENT
  Age: 47 Year
  Sex: Male

DRUGS (1)
  1. SIMPONI [Suspect]
     Active Substance: GOLIMUMAB
     Indication: Psoriatic arthropathy
     Route: 058
     Dates: start: 20210626

REACTIONS (2)
  - Bursitis infective [Recovered/Resolved]
  - Food allergy [Unknown]

NARRATIVE: CASE EVENT DATE: 20210101
